FAERS Safety Report 21121857 (Version 1)
Quarter: 2022Q3

REPORT INFORMATION
  Report Type: Report from Study
  Country: CH (occurrence: CH)
  Receive Date: 20220722
  Receipt Date: 20220722
  Transmission Date: 20221027
  Serious: Yes (Other)
  Sender: FDA-Public Use
  Company Number: CH-DAIICHI SANKYO EUROPE GMBH-DSE-2022-125378

PATIENT
  Age: 84 Year
  Sex: Male

DRUGS (1)
  1. PRASUGREL HYDROCHLORIDE [Suspect]
     Active Substance: PRASUGREL HYDROCHLORIDE
     Indication: Platelet aggregation inhibition
     Dosage: UNK
     Route: 065

REACTIONS (1)
  - Gastric disorder [Unknown]
